FAERS Safety Report 25918408 (Version 1)
Quarter: 2025Q4

REPORT INFORMATION
  Report Type: Spontaneous
  Country: CA (occurrence: CA)
  Receive Date: 20251014
  Receipt Date: 20251014
  Transmission Date: 20260118
  Serious: Yes (Death, Hospitalization, Other)
  Sender: HIKMA
  Company Number: CA-HIKMA PHARMACEUTICALS USA INC.-CA-H14001-25-10917

PATIENT
  Age: 87 Year
  Sex: Female

DRUGS (3)
  1. CEFAZOLIN [Suspect]
     Active Substance: CEFAZOLIN
     Dosage: 2 GRAM, Q12H (1 EVERY 12 HOURS)
     Route: 042
  2. CEFAZOLIN [Suspect]
     Active Substance: CEFAZOLIN
     Indication: Staphylococcal bacteraemia
     Dosage: 2 GRAM, Q4H (1 EVERY 4 HOURS)
     Route: 042
  3. NITROFURANTOIN [Concomitant]
     Active Substance: NITROFURANTOIN
     Indication: Prophylaxis urinary tract infection
     Dosage: UNKNOWN
     Route: 065

REACTIONS (2)
  - Generalised tonic-clonic seizure [Fatal]
  - Overdose [Fatal]
